FAERS Safety Report 4731366-0 (Version None)
Quarter: 2005Q3

REPORT INFORMATION
  Report Type: 
  Country: None (occurrence: None)
  Receive Date: 20050801
  Receipt Date: 20050801
  Transmission Date: 20060218
  Serious: Yes (Life-Threatening, Hospitalization)
  Sender: FDA-Public Use
  Company Number: None

PATIENT
  Age: 72 Year
  Sex: Male
  Weight: 80 kg

DRUGS (2)
  1. DIGOXIN [Suspect]
     Indication: CARDIAC FAILURE CONGESTIVE
     Dosage: 0.125MG   DAILY   ORAL
     Route: 048
     Dates: start: 20040101, end: 20050114
  2. COREG [Suspect]
     Indication: CARDIAC FAILURE CONGESTIVE
     Dosage: 3.125MG  DAILY  ORAL
     Route: 048
     Dates: start: 20040101, end: 20050114

REACTIONS (8)
  - CARDIAC FAILURE CONGESTIVE [None]
  - CONDITION AGGRAVATED [None]
  - DIALYSIS [None]
  - DRUG TOXICITY [None]
  - HEART RATE DECREASED [None]
  - HYPERKALAEMIA [None]
  - LUNG INFILTRATION [None]
  - RENAL FAILURE CHRONIC [None]
